FAERS Safety Report 5379690-5 (Version None)
Quarter: 2007Q3

REPORT INFORMATION
  Report Type: 
  Country: None (occurrence: None)
  Receive Date: 20070706
  Receipt Date: 20070629
  Transmission Date: 20080115
  Serious: Yes (Other)
  Sender: FDA-Public Use
  Company Number: PHEH2007US09435

PATIENT
  Age: 11 Month

DRUGS (1)
  1. ELIDEL [Suspect]
     Route: 061

REACTIONS (2)
  - LYMPHADENOPATHY [None]
  - LYMPHOMA [None]
